FAERS Safety Report 10936087 (Version 2)
Quarter: 2015Q3

REPORT INFORMATION
  Report Type: Spontaneous
  Country: US (occurrence: US)
  Receive Date: 20150320
  Receipt Date: 20150731
  Transmission Date: 20151125
  Serious: Yes (Death, Hospitalization, Other)
  Sender: FDA-Public Use
  Company Number: US-GLAXOSMITHKLINE-US2015GSK037109

PATIENT
  Age: 56 Year
  Sex: Female
  Weight: 137.41 kg

DRUGS (1)
  1. TAFINLAR [Suspect]
     Active Substance: DABRAFENIB MESYLATE
     Indication: METASTATIC MALIGNANT MELANOMA
     Dosage: 75 MG, BID
     Route: 048
     Dates: start: 20150317, end: 20150318

REACTIONS (4)
  - Acute hepatic failure [Fatal]
  - Acute kidney injury [Fatal]
  - Tumour lysis syndrome [Fatal]
  - Respiratory distress [Fatal]

NARRATIVE: CASE EVENT DATE: 20150318
